FAERS Safety Report 8206894-6 (Version None)
Quarter: 2012Q1

REPORT INFORMATION
  Report Type: 
  Country: None (occurrence: None)
  Receive Date: 20120306
  Receipt Date: 20120228
  Transmission Date: 20120608
  Serious: Yes (Hospitalization)
  Sender: FDA-Public Use
  Company Number: 2012031437

PATIENT
  Age: 85 Year
  Sex: Female

DRUGS (9)
  1. PRIVIGEN [Suspect]
  2. AMIODARONE HCL [Concomitant]
  3. ZOLPIDEM [Concomitant]
  4. PRIVIGEN [Suspect]
     Dosage: INTRAVENOUS
     Route: 042
     Dates: start: 20111216, end: 20111220
  5. DESLORATADINE (DESLORATADINE) [Concomitant]
  6. PROPRANOLOL [Concomitant]
  7. FUROSEMIDE (FUROSEMIDE) [Concomitant]
  8. AMBROXOL (AMBROXOL) [Concomitant]
  9. CALCIUM W/COLECALCIFEROL (CALCIUM D3) [Concomitant]

REACTIONS (3)
  - RECTAL HAEMORRHAGE [None]
  - PROCTITIS HAEMORRHAGIC [None]
  - COLITIS ISCHAEMIC [None]
